FAERS Safety Report 19275557 (Version 1)
Quarter: 2021Q2

REPORT INFORMATION
  Report Type: Spontaneous
  Country: US (occurrence: US)
  Receive Date: 20210519
  Receipt Date: 20210519
  Transmission Date: 20210717
  Serious: Yes (Other)
  Sender: FDA-Public Use
  Company Number: US-PFIZER INC-2021511940

PATIENT
  Age: 60 Year
  Sex: Female
  Weight: 94.35 kg

DRUGS (2)
  1. EPINEPHRINE. [Suspect]
     Active Substance: EPINEPHRINE
     Indication: LOCAL ANAESTHESIA
     Dosage: UNK
  2. POTASSIUM [Concomitant]
     Active Substance: POTASSIUM
     Dosage: 99 MG(SUSTAINED RELEASE VEGAN TABLET BY MOUTH, 1?2 TIMES A WEEK)
     Dates: start: 202104

REACTIONS (3)
  - Drug hypersensitivity [Unknown]
  - Syncope [Unknown]
  - Dyspnoea [Unknown]
